FAERS Safety Report 12621428 (Version 1)
Quarter: 2016Q3

REPORT INFORMATION
  Report Type: Spontaneous
  Country: US (occurrence: None)
  Receive Date: 20160803
  Receipt Date: 20160803
  Transmission Date: 20161109
  Serious: Yes (Other)
  Sender: FDA-Public Use
  Company Number: None

PATIENT
  Age: 51 Year
  Sex: Female
  Weight: 72.58 kg

DRUGS (7)
  1. ADVAIR DISKUS [Concomitant]
     Active Substance: FLUTICASONE PROPIONATE\SALMETEROL XINAFOATE
  2. TOPIRAMATE 25 MG TABLET, 25 MG [Suspect]
     Active Substance: TOPIRAMATE
     Indication: VESTIBULAR MIGRAINE
     Route: 048
     Dates: start: 20160701, end: 20160715
  3. ZETIA [Concomitant]
     Active Substance: EZETIMIBE
  4. THEO-24 ER [Concomitant]
  5. VENTOLIN [Concomitant]
     Active Substance: ALBUTEROL SULFATE
  6. SIMVISTATIN [Concomitant]
     Active Substance: SIMVASTATIN
  7. BUTTERBUR EXTRACT [Concomitant]

REACTIONS (7)
  - Hallucination, visual [None]
  - Vitreous floaters [None]
  - Confusional state [None]
  - Memory impairment [None]
  - Burning sensation [None]
  - Visual field defect [None]
  - Feeling abnormal [None]

NARRATIVE: CASE EVENT DATE: 20160716
